FAERS Safety Report 5796876-6 (Version None)
Quarter: 2008Q2

REPORT INFORMATION
  Report Type: 
  Country: None (occurrence: None)
  Receive Date: 20080618
  Receipt Date: 20070504
  Transmission Date: 20081010
  Serious: Yes (Other)
  Sender: FDA-Public Use
  Company Number: 200713440US

PATIENT
  Age: 84 Year
  Sex: Female

DRUGS (14)
  1. LANTUS [Suspect]
     Indication: TYPE 2 DIABETES MELLITUS
     Dosage: 22 U QAM
     Dates: start: 20060801
  2. OPTICLIK [Suspect]
     Indication: TYPE 2 DIABETES MELLITUS
     Dates: start: 20060801
  3. PREDNISONE TAB [Suspect]
  4. OTHER MEDICATIONS NOS [Suspect]
     Dates: start: 20070429, end: 20070503
  5. CLOPIDOGREL (PLAVIX /01220701/) [Concomitant]
  6. POTASSIUM CHLORIDE (MICRO K) [Concomitant]
  7. COREG [Concomitant]
  8. SPIRONOLACTONE (ALDACTONE /00006201/) [Concomitant]
  9. FOLIC ACID [Concomitant]
  10. METHOTREXATE [Concomitant]
  11. LASIX [Concomitant]
  12. CALCIUM [Concomitant]
  13. PARACETAMOL, DEXTROPROPOXYPHENE NAPSILATE (DARVOCET-N) [Concomitant]
  14. ATIVAN [Concomitant]

REACTIONS (1)
  - HYPERGLYCAEMIA [None]
